FAERS Safety Report 6123144-5 (Version None)
Quarter: 2009Q1

REPORT INFORMATION
  Report Type: 
  Country: None (occurrence: None)
  Receive Date: 20090318
  Receipt Date: 20090305
  Transmission Date: 20090719
  Serious: Yes (Hospitalization)
  Sender: FDA-Public Use
  Company Number: FR-PFIZER INC-2009180335

PATIENT

DRUGS (16)
  1. LYRICA [Suspect]
     Route: 048
     Dates: end: 20080813
  2. SERESTA [Suspect]
     Dosage: UNK
     Route: 048
     Dates: end: 20080813
  3. BROMAZEPAM [Suspect]
     Dosage: UNK
     Route: 048
     Dates: end: 20080813
  4. NISISCO [Suspect]
     Dosage: UNK
     Route: 048
     Dates: end: 20080813
  5. FENTICONAZOLE NITRATE [Concomitant]
  6. KETODERM [Concomitant]
  7. SPASFON [Concomitant]
  8. ASCORBIC ACID/COPPER/RETINOL/TOCOPHEROL/ZINC [Concomitant]
  9. LUBENTYL [Concomitant]
  10. FORLAX [Concomitant]
  11. NOOTROPYL [Concomitant]
  12. MELAXOSE [Concomitant]
  13. RANITIDINE [Concomitant]
  14. DIALGIREX [Concomitant]
  15. VOGALENE [Concomitant]
  16. PARAPSYLLIUM [Suspect]

REACTIONS (1)
  - FALL [None]
